FAERS Safety Report 15051363 (Version 1)
Quarter: 2018Q2

REPORT INFORMATION
  Report Type: Spontaneous
  Country: CA (occurrence: CA)
  Receive Date: 20180622
  Receipt Date: 20180622
  Transmission Date: 20180711
  Serious: Yes (Other)
  Sender: FDA-Public Use
  Company Number: CA-PFIZER INC-2018129934

PATIENT
  Age: 39 Year
  Sex: Male
  Weight: 81.63 kg

DRUGS (3)
  1. CHAMPIX [Suspect]
     Active Substance: VARENICLINE TARTRATE
     Indication: SMOKING CESSATION THERAPY
     Dosage: 0.5 MG, 1X/DAY FOR 3 DAYS
     Route: 048
     Dates: start: 20180105, end: 201801
  2. CHAMPIX [Suspect]
     Active Substance: VARENICLINE TARTRATE
     Dosage: 1 MG, 2X/DAY GOING FORWARD
     Route: 048
     Dates: start: 201801, end: 20180223
  3. CHAMPIX [Suspect]
     Active Substance: VARENICLINE TARTRATE
     Dosage: 0.5 MG, 2X/DAY FOR 4 DAYS
     Route: 048
     Dates: start: 201801, end: 201801

REACTIONS (3)
  - Suicidal ideation [Recovered/Resolved with Sequelae]
  - Depression [Recovering/Resolving]
  - Bedridden [Recovered/Resolved]

NARRATIVE: CASE EVENT DATE: 2018
